FAERS Safety Report 9374650 (Version 1)
Quarter: 2013Q2

REPORT INFORMATION
  Report Type: Spontaneous
  Country: US (occurrence: US)
  Receive Date: 20130628
  Receipt Date: 20130628
  Transmission Date: 20140414
  Serious: Yes (Hospitalization, Other)
  Sender: FDA-Public Use
  Company Number: US-PFIZER INC-2013190358

PATIENT
  Age: 72 Year
  Sex: Female
  Weight: 58.96 kg

DRUGS (1)
  1. TOVIAZ [Suspect]
     Indication: BLADDER DISORDER
     Dosage: 8 MG, 1X/DAY
     Dates: start: 2013

REACTIONS (3)
  - Rectocele [Unknown]
  - Bladder disorder [Unknown]
  - Uterine disorder [Unknown]
